FAERS Safety Report 12203811 (Version 1)
Quarter: 2016Q1

REPORT INFORMATION
  Report Type: Spontaneous
  Country: IN (occurrence: IN)
  Receive Date: 20160323
  Receipt Date: 20160323
  Transmission Date: 20160526
  Serious: Yes (Hospitalization)
  Sender: FDA-Public Use
  Company Number: IN-CIPLA LTD.-2016IN02745

PATIENT

DRUGS (1)
  1. RAMIPRIL. [Suspect]
     Active Substance: RAMIPRIL
     Dosage: 20 TABLETS
     Route: 048

REACTIONS (15)
  - Acute kidney injury [Unknown]
  - Hyperkalaemia [Unknown]
  - Toxicity to various agents [Recovering/Resolving]
  - Hepatic function abnormal [Recovering/Resolving]
  - Hypothermia [Recovering/Resolving]
  - Tachycardia [Recovering/Resolving]
  - Hypotension [Recovering/Resolving]
  - Metabolic acidosis [Unknown]
  - Lactic acidosis [Unknown]
  - Cardiogenic shock [Recovering/Resolving]
  - Tachypnoea [Unknown]
  - Suicide attempt [Unknown]
  - Coma scale abnormal [Unknown]
  - Left ventricular dysfunction [Recovering/Resolving]
  - Blood alkaline phosphatase increased [Unknown]
